FAERS Safety Report 15272560 (Version 1)
Quarter: 2018Q3

REPORT INFORMATION
  Report Type: Spontaneous
  Country: US (occurrence: US)
  Receive Date: 20180813
  Receipt Date: 20180813
  Transmission Date: 20181010
  Serious: No
  Sender: FDA-Public Use
  Company Number: US-ALEXION-A201808406

PATIENT
  Age: 71 Year
  Sex: Female

DRUGS (1)
  1. NO DRUG [Suspect]
     Active Substance: UNSPECIFIED INGREDIENT
     Indication: ATYPICAL HAEMOLYTIC URAEMIC SYNDROME
     Dosage: 900 MG, EVERY WEEK/WEEKLY
     Route: 042
     Dates: start: 20180604

REACTIONS (1)
  - No adverse event [Unknown]
